FAERS Safety Report 8824290 (Version 1)
Quarter: 2012Q4

REPORT INFORMATION
  Report Type: 
  Country: US (occurrence: US)
  Receive Date: 20121004
  Receipt Date: 20121004
  Transmission Date: 20130627
  Serious: No
  Sender: FDA-Public Use
  Company Number: US-009507513-1209USA008279

PATIENT

DRUGS (3)
  1. VICTRELIS [Suspect]
     Route: 048
  2. REBETOL [Suspect]
     Route: 048
  3. PEG-INTRON [Suspect]

REACTIONS (1)
  - Inappropriate schedule of drug administration [Unknown]
